FAERS Safety Report 9241159 (Version 1)
Quarter: 2013Q1

REPORT INFORMATION
  Report Type: Spontaneous
  Country: US (occurrence: None)
  Receive Date: 20121120
  Receipt Date: 20121120
  Transmission Date: 20140127
  Serious: No
  Sender: FDA-Public Use
  Company Number: 1000038998

PATIENT
  Sex: Female

DRUGS (3)
  1. VIIBRYD [Suspect]
     Dates: start: 201112
  2. DIOVAN (VALSARTAN) (VALSARTAN) [Concomitant]
  3. SYNTHROID (LEVOTHYROXINE SODIUM) (LEVOTHYROXINE SODIUM) [Concomitant]

REACTIONS (1)
  - Muscle spasms [None]
